FAERS Safety Report 9222716 (Version 2)
Quarter: 2013Q2

REPORT INFORMATION
  Report Type: Spontaneous
  Country: US (occurrence: US)
  Receive Date: 20130410
  Receipt Date: 20130520
  Transmission Date: 20140414
  Serious: Yes (Death)
  Sender: FDA-Public Use
  Company Number: US-ROCHE-1209372

PATIENT
  Age: 81 Year
  Sex: Male

DRUGS (1)
  1. ACTILYSE [Suspect]
     Indication: CEREBROVASCULAR ACCIDENT
     Dosage: (ADMINISTRATIONS OF 5 MG, 6 MG AND 2X 1 MG)
     Route: 013

REACTIONS (4)
  - Brain compression [Fatal]
  - Hydrocephalus [Fatal]
  - Cerebral hyperperfusion syndrome [Fatal]
  - Brain oedema [Fatal]
